FAERS Safety Report 15389525 (Version 1)
Quarter: 2018Q3

REPORT INFORMATION
  Report Type: Spontaneous
  Country: US (occurrence: US)
  Receive Date: 20180917
  Receipt Date: 20180917
  Transmission Date: 20181010
  Serious: No
  Sender: FDA-Public Use
  Company Number: US-TEVA-809781USA

PATIENT
  Sex: Female

DRUGS (1)
  1. FENTANYL. [Suspect]
     Active Substance: FENTANYL
     Indication: ABDOMINAL PAIN
     Route: 062

REACTIONS (7)
  - Feeling abnormal [Unknown]
  - Drug ineffective [Unknown]
  - Application site erythema [Unknown]
  - Application site vesicles [Unknown]
  - Withdrawal syndrome [Unknown]
  - Wrong technique in product usage process [Unknown]
  - Insomnia [Unknown]

NARRATIVE: CASE EVENT DATE: 20170920
